FAERS Safety Report 24687349 (Version 2)
Quarter: 2024Q4

REPORT INFORMATION
  Report Type: Spontaneous
  Country: US (occurrence: US)
  Receive Date: 20241202
  Receipt Date: 20241209
  Transmission Date: 20250114
  Serious: Yes (Other)
  Sender: BRISTOL-MYERS SQUIBB COMPANY
  Company Number: US-BRISTOL-MYERS SQUIBB COMPANY-2024-183970

PATIENT
  Age: 74 Year
  Sex: Male

DRUGS (1)
  1. POMALYST [Suspect]
     Active Substance: POMALIDOMIDE
     Indication: Plasma cell myeloma
     Dosage: TAKE 1 WHOLE CAPSULE (2MG) BY MOUTH WITH WATER W/ OR W/O FOOD AT THE SAME TIME DAILY ON DAYS 1-21 OF
     Route: 048

REACTIONS (3)
  - Drug ineffective [Unknown]
  - Dizziness [Unknown]
  - Fall [Unknown]
